FAERS Safety Report 15913287 (Version 2)
Quarter: 2019Q2

REPORT INFORMATION
  Report Type: Spontaneous
  Country: US (occurrence: US)
  Receive Date: 20190204
  Receipt Date: 20190522
  Transmission Date: 20190711
  Serious: Yes (Other)
  Sender: FDA-Public Use
  Company Number: US-PFIZER INC-2019044223

PATIENT
  Age: 85 Year
  Sex: Male

DRUGS (14)
  1. ASPIRIN 81 [Concomitant]
     Active Substance: ASPIRIN
     Dosage: 81 MG, UNK
  2. XELJANZ XR [Suspect]
     Active Substance: TOFACITINIB CITRATE
     Dosage: 11 MG, 1X/DAY
     Route: 048
     Dates: end: 20181217
  3. ATORVASTATIN [Concomitant]
     Active Substance: ATORVASTATIN
     Dosage: 40 MG, DAILY
     Route: 048
  4. CALCIUM CARBONATE. [Concomitant]
     Active Substance: CALCIUM CARBONATE
     Dosage: 600 MG, 2X/DAY
  5. XELJANZ XR [Suspect]
     Active Substance: TOFACITINIB CITRATE
     Indication: PSORIATIC ARTHROPATHY
     Dosage: 11 MG, 1X/DAY
     Route: 048
     Dates: start: 20180817
  6. METOPROLOL SUCCINATE. [Concomitant]
     Active Substance: METOPROLOL SUCCINATE
     Dosage: 25 MG, DAILY
     Route: 048
  7. FUROSEMIDE. [Concomitant]
     Active Substance: FUROSEMIDE
     Dosage: 40 MG, DAILY
     Route: 048
  8. LEVOTHYROXINE. [Concomitant]
     Active Substance: LEVOTHYROXINE
     Dosage: 88 UG, DAILY
     Route: 048
  9. MAGNESIUM CHLORIDE. [Concomitant]
     Active Substance: MAGNESIUM CHLORIDE
     Dosage: 250 MG, DAILY
  10. POTASSIUM CHLORIDE. [Concomitant]
     Active Substance: POTASSIUM CHLORIDE
     Dosage: 20 MEQ, DAILY (WITH BREAKFAST)
     Route: 048
  11. ZOLEDRONIC ACID [Concomitant]
     Active Substance: ZOLEDRONIC ACID
     Dosage: UNK (YEARLY)
  12. FOLIC ACID. [Concomitant]
     Active Substance: FOLIC ACID
     Dosage: 1 MG, DAILY
     Route: 048
  13. SIMVASTATIN. [Concomitant]
     Active Substance: SIMVASTATIN
     Dosage: 80 MG, 1X/DAY (IN THE EVENING)
     Route: 048
  14. CYANOCOBALAMIN. [Concomitant]
     Active Substance: CYANOCOBALAMIN
     Dosage: 1.0 ML, MONTHLY
     Route: 030

REACTIONS (31)
  - Leukopenia [Unknown]
  - Blood triglycerides increased [Unknown]
  - Bronchiectasis [Unknown]
  - Dyspnoea [Unknown]
  - Peripheral swelling [Unknown]
  - Albumin globulin ratio decreased [Unknown]
  - Carbon dioxide decreased [Unknown]
  - Blood urea increased [Unknown]
  - Blood glucose increased [Unknown]
  - Oedema peripheral [Unknown]
  - Red blood cell count decreased [Unknown]
  - Blood pH increased [Unknown]
  - Acute respiratory failure [Unknown]
  - Renal disorder [Recovered/Resolved]
  - Pyrexia [Unknown]
  - Cough [Unknown]
  - Monocyte count increased [Unknown]
  - Blood creatinine increased [Unknown]
  - Blood cholesterol decreased [Unknown]
  - Low density lipoprotein decreased [Unknown]
  - Renal impairment [Unknown]
  - Interstitial lung disease [Unknown]
  - Hypoxia [Unknown]
  - Diarrhoea [Unknown]
  - Erythema [Unknown]
  - Haemoglobin decreased [Unknown]
  - Chills [Unknown]
  - Cellulitis [Unknown]
  - Oropharyngeal pain [Unknown]
  - Haematocrit decreased [Unknown]
  - Granulocyte count increased [Unknown]
